FAERS Safety Report 5590458-7 (Version None)
Quarter: 2008Q1

REPORT INFORMATION
  Report Type: 
  Country: None (occurrence: None)
  Receive Date: 20080114
  Receipt Date: 20080108
  Transmission Date: 20080703
  Serious: Yes (Hospitalization)
  Sender: FDA-Public Use
  Company Number: US-BOEHRINGER INGELHEIM PHARMACEUTICALS, INC.-2007-BP-26593BP

PATIENT
  Sex: Female

DRUGS (7)
  1. SPIRIVA [Suspect]
     Indication: CHRONIC OBSTRUCTIVE PULMONARY DISEASE
  2. SPIRIVA [Suspect]
     Indication: CREST SYNDROME
  3. ISOTENOL [Concomitant]
  4. ATENOLOL [Concomitant]
  5. ISOSORBIDE DINITRATE [Concomitant]
  6. TRACLEER [Concomitant]
  7. THYROID PILL [Concomitant]

REACTIONS (1)
  - CONFUSIONAL STATE [None]
